FAERS Safety Report 17998092 (Version 1)
Quarter: 2020Q3

REPORT INFORMATION
  Report Type: Report from Study
  Country: ES (occurrence: ES)
  Receive Date: 20200709
  Receipt Date: 20200709
  Transmission Date: 20201103
  Serious: Yes (Other)
  Sender: FDA-Public Use
  Company Number: ES-ACCORD-189159

PATIENT
  Age: 60 Year
  Sex: Female

DRUGS (2)
  1. ETOPOSIDE. [Suspect]
     Active Substance: ETOPOSIDE
     Indication: COVID-19
     Dosage: TOTAL DOSE : 2
  2. ENOXAPARIN [Concomitant]
     Active Substance: ENOXAPARIN
     Indication: PROPHYLAXIS

REACTIONS (3)
  - Off label use [Unknown]
  - Enterococcal infection [Unknown]
  - Cytopenia [Unknown]
